FAERS Safety Report 6718014-5 (Version None)
Quarter: 2010Q2

REPORT INFORMATION
  Report Type: 
  Country: None (occurrence: None)
  Receive Date: 20100510
  Receipt Date: 20100427
  Transmission Date: 20101027
  Serious: Yes (Other)
  Sender: FDA-Public Use
  Company Number: PHHY2010CA21071

PATIENT
  Sex: Male

DRUGS (7)
  1. ALISKIREN ALI+ [Suspect]
     Indication: HYPERTENSION
     Dosage: 150 MG, QD
     Route: 048
     Dates: start: 20091103
  2. ATACAND [Concomitant]
     Dosage: 32 MG, BID
  3. NORVASC [Concomitant]
     Dosage: 10 MG, QD
  4. METFORMIN HYDROCHLORIDE [Concomitant]
     Dosage: 1 G, BID
  5. DIABETA [Concomitant]
     Dosage: 2.5 MG, QD
  6. ZOCOR [Concomitant]
     Dosage: 20 MG, UNK
  7. ATENOLOL [Concomitant]
     Dosage: 100 MG, QD

REACTIONS (2)
  - MICROALBUMINURIA [None]
  - URINE ALBUMIN/CREATININE RATIO INCREASED [None]
